FAERS Safety Report 19951337 (Version 1)
Quarter: 2021Q4

REPORT INFORMATION
  Report Type: Spontaneous
  Country: US (occurrence: US)
  Receive Date: 20211013
  Receipt Date: 20211013
  Transmission Date: 20220303
  Serious: Yes (Other)
  Sender: FDA-Public Use
  Company Number: US-PFIZER INC-202101351149

PATIENT
  Sex: Female
  Weight: 50.34 kg

DRUGS (2)
  1. KETAMINE HYDROCHLORIDE [Suspect]
     Active Substance: KETAMINE HYDROCHLORIDE
     Dosage: 100 MG
     Route: 030
     Dates: start: 20190428
  2. KETAMINE HYDROCHLORIDE [Suspect]
     Active Substance: KETAMINE HYDROCHLORIDE
     Dosage: 100 MG
     Route: 042
     Dates: start: 20190428

REACTIONS (6)
  - Injection site thrombosis [Unknown]
  - Overdose [Unknown]
  - Aphasia [Unknown]
  - Hypokinesia [Unknown]
  - Visual field defect [Unknown]
  - Weight decreased [Unknown]
